FAERS Safety Report 8017567-7 (Version None)
Quarter: 2011Q4

REPORT INFORMATION
  Report Type: 
  Country: None (occurrence: None)
  Receive Date: 20111229
  Receipt Date: 20111229
  Transmission Date: 20120403
  Serious: Yes (Hospitalization)
  Sender: FDA-Public Use
  Company Number: None

PATIENT
  Age: 83 Year
  Sex: Female
  Weight: 61.5 kg

DRUGS (8)
  1. BACTRIM [Suspect]
     Indication: URINARY TRACT INFECTION
     Dosage: PO
     Route: 048
  2. SPIRIVA [Concomitant]
  3. I CAPS [Concomitant]
  4. CRESTOR [Concomitant]
  5. COMBIVENT [Concomitant]
  6. ASPIRIN [Concomitant]
  7. COUMADIN [Suspect]
     Indication: ATRIAL FIBRILLATION
     Dosage: 4MG/3MG ODD DAYS/EVEN DAYS PO CHRONIC
     Route: 048
  8. FOSAMAX [Concomitant]

REACTIONS (6)
  - URINARY TRACT INFECTION [None]
  - INTERNATIONAL NORMALISED RATIO INCREASED [None]
  - BLOOD UREA INCREASED [None]
  - BLOOD CREATININE INCREASED [None]
  - ASTHENIA [None]
  - DRUG INTERACTION [None]
